FAERS Safety Report 13235058 (Version 2)
Quarter: 2017Q1

REPORT INFORMATION
  Report Type: Report from Study
  Country: US (occurrence: US)
  Receive Date: 20170215
  Receipt Date: 20170312
  Transmission Date: 20170428
  Serious: Yes (Death)
  Sender: FDA-Public Use
  Company Number: PHEH2017US004606

PATIENT
  Sex: Male

DRUGS (2)
  1. JADENU [Suspect]
     Active Substance: DEFERASIROX
     Indication: MYELODYSPLASTIC SYNDROME
     Dosage: 6 DF, QD
     Route: 065
  2. JADENU [Suspect]
     Active Substance: DEFERASIROX
     Indication: ANAEMIA

REACTIONS (1)
  - Death [Fatal]
